FAERS Safety Report 7928919 (Version 3)
Quarter: 2014Q2

REPORT INFORMATION
  Report Type: Spontaneous
  Country: US (occurrence: US)
  Receive Date: 20110503
  Receipt Date: 20140509
  Transmission Date: 20141212
  Serious: Yes (Hospitalization, Other)
  Sender: FDA-Public Use
  Company Number: US-BAYER-2010-002167

PATIENT
  Age: 16 Year
  Sex: Female
  Weight: 63.49 kg

DRUGS (9)
  1. YASMIN [Suspect]
     Indication: DYSMENORRHOEA
     Dosage: UNK
     Route: 048
     Dates: start: 2005, end: 2007
  2. CEPHALEXIN [Concomitant]
     Dosage: 500 MG, UNK
     Dates: start: 200607
  3. FEXOFENADINE [Concomitant]
     Dosage: 180 MG, UNK
  4. ULTRAM [Concomitant]
  5. ORTHO [Concomitant]
     Dosage: UNK
     Dates: start: 200509, end: 201004
  6. ERRIN [Concomitant]
     Dosage: UNK
     Dates: start: 200509, end: 201004
  7. PERMETHRIN [Concomitant]
  8. ALLEGRA [Concomitant]
  9. KEFLEX [Concomitant]

REACTIONS (4)
  - Cholelithiasis [None]
  - Convulsion [None]
  - Pain [None]
  - Cholecystitis chronic [None]
